FAERS Safety Report 4759131-9 (Version None)
Quarter: 2005Q3

REPORT INFORMATION
  Report Type: 
  Country: None (occurrence: None)
  Receive Date: 20050831
  Receipt Date: 20050823
  Transmission Date: 20060218
  Serious: Yes (Death)
  Sender: FDA-Public Use
  Company Number: D-A2501023-3829

PATIENT
  Age: 79 Year
  Sex: Male
  Weight: 55 kg

DRUGS (5)
  1. DONEPEZIL HCL [Suspect]
     Indication: DEMENTIA ALZHEIMER'S TYPE
     Dosage: 5 MG, 1 IN 1 D, ORAL
     Route: 048
     Dates: start: 20030519, end: 20030623
  2. DIGOXIN [Concomitant]
  3. TRIFLUSAL (TRIFLUSAL) [Concomitant]
  4. GLYBURIDE [Concomitant]
  5. CARASEL (RAMIPRIL) [Concomitant]

REACTIONS (2)
  - AORTIC VALVE STENOSIS [None]
  - CARDIAC FAILURE [None]
